FAERS Safety Report 9189219 (Version 1)
Quarter: 2013Q1

REPORT INFORMATION
  Report Type: Spontaneous
  Country: US (occurrence: None)
  Receive Date: 20130321
  Receipt Date: 20130321
  Transmission Date: 20140127
  Serious: No
  Sender: FDA-Public Use
  Company Number: None

PATIENT
  Age: 58 Year
  Sex: Female

DRUGS (1)
  1. XELODA [Suspect]
     Indication: BREAST CANCER
     Dosage: 500MG  2 TABS AM 3 TABS PM PO
     Route: 048
     Dates: start: 20130109, end: 20130301

REACTIONS (1)
  - Unevaluable event [None]
